FAERS Safety Report 6524171-6 (Version None)
Quarter: 2009Q4

REPORT INFORMATION
  Report Type: 
  Country: None (occurrence: None)
  Receive Date: 20091230
  Receipt Date: 20091230
  Transmission Date: 20100525
  Serious: No
  Sender: FDA-Public Use
  Company Number: None

PATIENT

DRUGS (2)
  1. COLD REMEDY GEL SWABS [Suspect]
     Dosage: TREAT COMMON COLD
     Dates: start: 20090501
  2. COLD REMEDY ORAL MIST [Suspect]
     Dosage: TREAT COMMON COLD
     Route: 048
     Dates: start: 20090501

REACTIONS (2)
  - AGEUSIA [None]
  - ANOSMIA [None]
